FAERS Safety Report 8184167-8 (Version None)
Quarter: 2012Q1

REPORT INFORMATION
  Report Type: 
  Country: None (occurrence: None)
  Receive Date: 20120305
  Receipt Date: 20120223
  Transmission Date: 20120608
  Serious: Yes (Other)
  Sender: FDA-Public Use
  Company Number: GB-TEVA-325374ISR

PATIENT
  Age: 76 Year
  Sex: Male

DRUGS (9)
  1. FYBOGEL [Concomitant]
  2. PROSTEP [Concomitant]
     Indication: PROSTATE CANCER
  3. THIAMINE HCL [Concomitant]
  4. SERTRALINE HYDROCHLORIDE [Suspect]
  5. ADCAL-D3 [Concomitant]
  6. OMEPRAZOLE [Concomitant]
  7. MORPHINE SULFATE [Concomitant]
  8. TAMSULOSIN HCL [Concomitant]
  9. RAMIPRIL [Concomitant]

REACTIONS (1)
  - HYPERKALAEMIA [None]
